FAERS Safety Report 7984206-0 (Version None)
Quarter: 2011Q4

REPORT INFORMATION
  Report Type: 
  Country: None (occurrence: None)
  Receive Date: 20111216
  Receipt Date: 20110601
  Transmission Date: 20120403
  Serious: Yes (Hospitalization, Other)
  Sender: FDA-Public Use
  Company Number: US-BAYER-2011-021672

PATIENT
  Age: 20 Year
  Sex: Female
  Weight: 52 kg

DRUGS (5)
  1. PHENAZOPYRIDINE HCL TAB [Concomitant]
     Indication: URINARY TRACT INFECTION
     Dosage: 200 MG, UNK
     Route: 048
     Dates: start: 20070326
  2. FLUVOXAMINE MALEATE [Concomitant]
     Dosage: 100 MG, UNK
     Dates: start: 20070325
  3. BACTRIM DS [Concomitant]
     Indication: URINARY TRACT INFECTION
     Dosage: 1 DF, UNK
     Route: 048
     Dates: start: 20070326
  4. YAZ [Suspect]
     Dosage: UNK
     Dates: start: 20070301, end: 20070401
  5. CIPROFLOXACIN [Concomitant]
     Dosage: 500 MG, UNK
     Route: 048
     Dates: start: 20070330

REACTIONS (7)
  - PAIN [None]
  - CHEST PAIN [None]
  - PULMONARY EMBOLISM [None]
  - INJURY [None]
  - HEART INJURY [None]
  - DYSPNOEA [None]
  - FEAR [None]
